FAERS Safety Report 21505503 (Version 2)
Quarter: 2022Q4

REPORT INFORMATION
  Report Type: Report from Study
  Country: US (occurrence: US)
  Receive Date: 20221026
  Receipt Date: 20221226
  Transmission Date: 20230112
  Serious: Yes (Hospitalization, Other)
  Sender: FDA-Public Use
  Company Number: US-BAXTER-2022BAX018465

PATIENT
  Age: 12 Year
  Sex: Male
  Weight: 30.2 kg

DRUGS (17)
  1. CYCLOPHOSPHAMIDE [Suspect]
     Active Substance: CYCLOPHOSPHAMIDE
     Indication: Refractory cancer
     Dosage: UNK
     Route: 065
     Dates: start: 20160417, end: 20160419
  2. CYCLOPHOSPHAMIDE [Suspect]
     Active Substance: CYCLOPHOSPHAMIDE
     Indication: Recurrent cancer
     Dosage: UNK
     Route: 065
     Dates: start: 20160509, end: 20160826
  3. CYCLOPHOSPHAMIDE [Suspect]
     Active Substance: CYCLOPHOSPHAMIDE
     Indication: Neuroblastoma
     Dosage: 187.5 MG, ON DAY 1-5 OF EVERY 21 DAYS, EVERY 1 DAYS, ONGOING
     Route: 042
     Dates: start: 20220302
  4. DOXORUBICIN [Suspect]
     Active Substance: DOXORUBICIN
     Indication: Neuroblastoma
     Dosage: UNK
     Route: 065
     Dates: start: 20220417, end: 20220419
  5. VENETOCLAX [Suspect]
     Active Substance: VENETOCLAX
     Indication: Refractory cancer
     Dosage: 500 MG ON DAYS 1-10 OF 21 DAY CYCLE, EVERY 1 DAYS, DOSING LIQUID: 100 % APPLE JUICE, ROUTE: NASOGAST
     Route: 050
     Dates: start: 20220228, end: 20220718
  6. VENETOCLAX [Suspect]
     Active Substance: VENETOCLAX
     Indication: Recurrent cancer
     Dosage: 500 MG ON DAYS 1-10 OF 21 DAY CYCLE, EVERY 1 DAYS, ROUTE: NASOGASTRIC
     Route: 050
     Dates: start: 20220727
  7. TOPOTECAN HYDROCHLORIDE [Suspect]
     Active Substance: TOPOTECAN HYDROCHLORIDE
     Indication: Refractory cancer
     Dosage: 0.56 MG, ON DAY 1-5 OF EVERY 21 DAYS, EVERY 1 DAYS
     Route: 042
     Dates: start: 20220302
  8. TOPOTECAN HYDROCHLORIDE [Suspect]
     Active Substance: TOPOTECAN HYDROCHLORIDE
     Indication: Recurrent cancer
  9. ONDANSETRON [Concomitant]
     Active Substance: ONDANSETRON
     Indication: Prophylaxis of nausea and vomiting
     Dosage: 4MG, EVERY 8 HOURS AS NEEDED, EVERY 8 HOURS
     Route: 048
     Dates: start: 20220228
  10. BACTRIM [Concomitant]
     Active Substance: SULFAMETHOXAZOLE\TRIMETHOPRIM
     Indication: Antifungal prophylaxis
     Dosage: 80 MG (1 AS REQUIRED), 2 TIMES A DAY EVERY SAT AND SUN, ONGOING
     Route: 048
     Dates: start: 20220305
  11. OXYCODONE [Concomitant]
     Active Substance: OXYCODONE
     Indication: Pain prophylaxis
     Dosage: 3.5 MG (1 AS REQUIRED) EVERY 6 HOURS AS NEEDED, ONGOING
     Route: 048
     Dates: start: 20220228
  12. PROMETHAZINE [Concomitant]
     Active Substance: PROMETHAZINE HYDROCHLORIDE
     Indication: Prophylaxis of nausea and vomiting
     Dosage: 9.38 MG, 1 AS REQUIRED, EVERY 6 HOURS
     Route: 048
     Dates: start: 20220228
  13. PROMETHAZINE [Concomitant]
     Active Substance: PROMETHAZINE HYDROCHLORIDE
     Indication: Vomiting
  14. PROMETHAZINE [Concomitant]
     Active Substance: PROMETHAZINE HYDROCHLORIDE
     Indication: Prophylaxis of nausea and vomiting
  15. LORAZEPAM [Concomitant]
     Active Substance: LORAZEPAM
     Indication: Nausea
     Dosage: 1 NG, 1 AS REQUIRED, EVERY 6 HOURS, ONGOING
     Route: 048
     Dates: start: 20220307
  16. LORAZEPAM [Concomitant]
     Active Substance: LORAZEPAM
     Indication: Vomiting
     Dosage: 0.5 MG, 1 AS REQUIRED, EVERY 6 HOURS
     Route: 042
     Dates: start: 20220420, end: 20220422
  17. LORAZEPAM [Concomitant]
     Active Substance: LORAZEPAM
     Indication: Prophylaxis of nausea and vomiting

REACTIONS (1)
  - Skin ulcer [Recovered/Resolved]

NARRATIVE: CASE EVENT DATE: 20220810
